FAERS Safety Report 5146767-9 (Version None)
Quarter: 2006Q4

REPORT INFORMATION
  Report Type: 
  Country: None (occurrence: None)
  Receive Date: 20061109
  Receipt Date: 20061101
  Transmission Date: 20070319
  Serious: Yes (Other)
  Sender: FDA-Public Use
  Company Number: ZA-JNJFOC-20061100090

PATIENT
  Age: 5 Decade
  Sex: Male

DRUGS (3)
  1. LEVOFLOXACIN [Suspect]
     Indication: SINUSITIS BACTERIAL
     Route: 048
     Dates: start: 20060626, end: 20060628
  2. PANTOLOC [Concomitant]
     Route: 048
  3. ZOLOFT [Concomitant]
     Indication: DEPRESSION

REACTIONS (4)
  - ANXIETY [None]
  - DEPRESSION [None]
  - DISSOCIATION [None]
  - INSOMNIA [None]
